FAERS Safety Report 10695553 (Version 1)
Quarter: 2015Q1

REPORT INFORMATION
  Report Type: Spontaneous
  Country: US (occurrence: None)
  Receive Date: 20150106
  Receipt Date: 20150106
  Transmission Date: 20150721
  Serious: No
  Sender: FDA-Public Use
  Company Number: None

PATIENT
  Age: 53 Year
  Sex: Female
  Weight: 154.22 kg

DRUGS (3)
  1. TEGRITOL [Concomitant]
  2. LISINOPRIL. [Concomitant]
     Active Substance: LISINOPRIL
  3. SEROQUEL 300MG [Suspect]
     Active Substance: QUETIAPINE FUMARATE
     Indication: BIPOLAR DISORDER
     Dosage: 300 MG, 2 PILLS AT NIGHT, 2 AT NITE
     Dates: start: 201410, end: 201411

REACTIONS (1)
  - Product formulation issue [None]

NARRATIVE: CASE EVENT DATE: 201411
